FAERS Safety Report 9290396 (Version 2)
Quarter: 2013Q3

REPORT INFORMATION
  Report Type: Spontaneous
  Country: US (occurrence: US)
  Receive Date: 20130515
  Receipt Date: 20130715
  Transmission Date: 20140515
  Serious: Yes (Hospitalization, Other)
  Sender: FDA-Public Use
  Company Number: US-PFIZER INC-2013149540

PATIENT
  Age: 46 Year
  Sex: Female

DRUGS (5)
  1. NEURONTIN [Suspect]
     Indication: BACK INJURY
     Dosage: 300 MG, 3X/DAY
     Dates: start: 2008
  2. NEURONTIN [Suspect]
     Dosage: 300 MG, 3X/DAY
     Dates: end: 201303
  3. ATENOLOL [Suspect]
     Indication: HYPERTENSION
     Dosage: 50MG DAILY
     Dates: end: 2013
  4. ZOLOFT [Concomitant]
     Indication: DEPRESSION
     Dosage: UNK
  5. SEROQUEL [Concomitant]
     Indication: SLEEP DISORDER
     Dosage: 400MG DAILY

REACTIONS (4)
  - Back pain [Unknown]
  - Bladder prolapse [Unknown]
  - Palpitations [Unknown]
  - Urinary tract infection [Unknown]
